FAERS Safety Report 8358422-2 (Version None)
Quarter: 2012Q2

REPORT INFORMATION
  Report Type: 
  Country: None (occurrence: None)
  Receive Date: 20120514
  Receipt Date: 20120507
  Transmission Date: 20120825
  Serious: Yes (Other)
  Sender: FDA-Public Use
  Company Number: DE-B.I. PHARMACEUTICALS,INC./RIDGEFIELD-2012-DE-01211DE

PATIENT
  Age: 44 Year
  Sex: Female

DRUGS (2)
  1. PRADAXA [Suspect]
  2. PRASUGREL [Concomitant]

REACTIONS (2)
  - MENORRHAGIA [None]
  - JAUNDICE [None]
